FAERS Safety Report 17842516 (Version 1)
Quarter: 2020Q2

REPORT INFORMATION
  Report Type: Spontaneous
  Country: KR (occurrence: KR)
  Receive Date: 20200529
  Receipt Date: 20200529
  Transmission Date: 20200714
  Serious: Yes (Other)
  Sender: FDA-Public Use
  Company Number: KR-GILEAD-2020-0469299

PATIENT
  Age: 67 Year
  Sex: Male

DRUGS (2)
  1. VEMLIDY [Suspect]
     Active Substance: TENOFOVIR ALAFENAMIDE FUMARATE
     Indication: HEPATITIS B
     Dosage: 1 DOSAGE FORM, QD
     Route: 048
     Dates: start: 201908
  2. BARACLUDE [Concomitant]
     Active Substance: ENTECAVIR

REACTIONS (2)
  - Viral load increased [Unknown]
  - Drug ineffective [Unknown]
